FAERS Safety Report 7982260-3 (Version None)
Quarter: 2011Q4

REPORT INFORMATION
  Report Type: 
  Country: None (occurrence: None)
  Receive Date: 20111215
  Receipt Date: 20111215
  Transmission Date: 20120403
  Serious: Yes (Hospitalization)
  Sender: FDA-Public Use
  Company Number: None

PATIENT
  Age: 38 Year
  Sex: Male
  Weight: 63.502 kg

DRUGS (1)
  1. AMBIEN [Suspect]
     Indication: INSOMNIA
     Dates: start: 20110501, end: 20111015

REACTIONS (3)
  - ROAD TRAFFIC ACCIDENT [None]
  - INTENTIONAL SELF-INJURY [None]
  - AMNESIA [None]
